FAERS Safety Report 6072244-7 (Version None)
Quarter: 2009Q1

REPORT INFORMATION
  Report Type: 
  Country: None (occurrence: None)
  Receive Date: 20090206
  Receipt Date: 20090206
  Transmission Date: 20090719
  Serious: Yes (Other)
  Sender: FDA-Public Use
  Company Number: None

PATIENT
  Sex: Female
  Weight: 72.5755 kg

DRUGS (1)
  1. COMBIGAN [Suspect]
     Dosage: 1 DROP BID OPHTHALMIC
     Route: 047
     Dates: start: 20080628, end: 20090205

REACTIONS (3)
  - BURNING SENSATION [None]
  - EYE IRRITATION [None]
  - EYELID DISORDER [None]
